FAERS Safety Report 4313066-4 (Version None)
Quarter: 2004Q1

REPORT INFORMATION
  Report Type: 
  Country: None (occurrence: None)
  Receive Date: 20040304
  Receipt Date: 20040217
  Transmission Date: 20041129
  Serious: Yes (Hospitalization)
  Sender: FDA-Public Use
  Company Number: 190768

PATIENT
  Age: 38 Year
  Sex: Male

DRUGS (5)
  1. AVONEX [Suspect]
     Indication: MULTIPLE SCLEROSIS
     Dosage: 30 MCG QW IM
     Route: 030
  2. LANTUS [Concomitant]
  3. NPH INSULIN [Concomitant]
  4. ALTACE [Concomitant]
  5. LEXAPRO [Concomitant]

REACTIONS (6)
  - CARDIAC ENZYMES INCREASED [None]
  - CHEST PAIN [None]
  - DIABETIC KETOACIDOSIS [None]
  - GASTROENTERITIS [None]
  - GASTROINTESTINAL HAEMORRHAGE [None]
  - HYPERKALAEMIA [None]
